FAERS Safety Report 7364633-5 (Version None)
Quarter: 2011Q1

REPORT INFORMATION
  Report Type: 
  Country: None (occurrence: None)
  Receive Date: 20110321
  Receipt Date: 20110307
  Transmission Date: 20110831
  Serious: Yes (Other)
  Sender: FDA-Public Use
  Company Number: GB-GENENTECH-315106

PATIENT
  Age: 17 Year
  Sex: Female

DRUGS (1)
  1. XOLAIR [Suspect]
     Indication: ASTHMA
     Dosage: 525 MG, Q2W
     Dates: start: 20101028

REACTIONS (6)
  - LOSS OF CONSCIOUSNESS [None]
  - DIZZINESS [None]
  - MIGRAINE [None]
  - JOINT SWELLING [None]
  - ARTHRALGIA [None]
  - MOBILITY DECREASED [None]
